FAERS Safety Report 9564743 (Version 2)
Quarter: 2013Q4

REPORT INFORMATION
  Report Type: Spontaneous
  Country: US (occurrence: US)
  Receive Date: 20130930
  Receipt Date: 20131119
  Transmission Date: 20140711
  Serious: No
  Sender: FDA-Public Use
  Company Number: US-PFIZER INC-2013279764

PATIENT
  Age: 79 Year
  Sex: Female
  Weight: 61.2 kg

DRUGS (5)
  1. CELEBREX [Suspect]
     Indication: ARTHRALGIA
     Dosage: 200 MG, 1X/DAY
     Route: 048
     Dates: start: 20130921
  2. CELEBREX [Suspect]
     Indication: PAIN
  3. CELEBREX [Suspect]
     Indication: OSTEOPOROSIS
  4. PREVACID [Concomitant]
     Dosage: 1X/DAY
  5. TRIAMTERENE [Concomitant]
     Dosage: 37.5 MG

REACTIONS (2)
  - Off label use [Unknown]
  - Drug ineffective [Unknown]
